FAERS Safety Report 24894199 (Version 1)
Quarter: 2025Q1

REPORT INFORMATION
  Report Type: Spontaneous
  Country: FR (occurrence: FR)
  Receive Date: 20250128
  Receipt Date: 20250128
  Transmission Date: 20250409
  Serious: Yes (Other)
  Sender: TEVA
  Company Number: FR-TEVA-VS-3287422

PATIENT
  Age: 60 Year
  Sex: Male

DRUGS (3)
  1. LENALIDOMIDE [Suspect]
     Active Substance: LENALIDOMIDE
     Indication: Plasma cell myeloma
     Route: 065
  2. DEXAMETHASONE [Suspect]
     Active Substance: DEXAMETHASONE
     Indication: Plasma cell myeloma
     Route: 048
     Dates: start: 201406, end: 201905
  3. DARZALEX [Suspect]
     Active Substance: DARATUMUMAB
     Indication: Plasma cell myeloma
     Route: 041
     Dates: start: 201710, end: 201808

REACTIONS (2)
  - Osteonecrosis [Not Recovered/Not Resolved]
  - Plasma cell myeloma [Unknown]

NARRATIVE: CASE EVENT DATE: 20180501
